FAERS Safety Report 6608039-2 (Version None)
Quarter: 2010Q1

REPORT INFORMATION
  Report Type: 
  Country: None (occurrence: None)
  Receive Date: 20100226
  Receipt Date: 20100226
  Transmission Date: 20100710
  Serious: No
  Sender: FDA-Public Use
  Company Number: None

PATIENT
  Age: 59 Year
  Sex: Female
  Weight: 61.6892 kg

DRUGS (5)
  1. CLOZAPINE [Suspect]
     Dosage: 25MG PO
     Route: 048
  2. SERTRALINE HCL [Suspect]
     Dosage: 75MG PO
     Route: 048
  3. HALDOL DEC [Concomitant]
  4. RISPERDAL [Concomitant]
  5. OLANZAPINE [Concomitant]

REACTIONS (2)
  - DRUG INTERACTION [None]
  - SEDATION [None]
